FAERS Safety Report 16166328 (Version 3)
Quarter: 2020Q2

REPORT INFORMATION
  Report Type: Report from Study
  Country: BR (occurrence: BR)
  Receive Date: 20190406
  Receipt Date: 20200403
  Transmission Date: 20200713
  Serious: Yes (Hospitalization, Other)
  Sender: FDA-Public Use
  Company Number: PHHY2019BR076158

PATIENT
  Age: 72 Year
  Sex: Female

DRUGS (12)
  1. BEROTEC [Concomitant]
     Active Substance: FENOTEROL HYDROBROMIDE
     Indication: PRODUCT USED FOR UNKNOWN INDICATION
     Dosage: UNK
     Route: 065
  2. DUOVENT [Concomitant]
     Active Substance: FENOTEROL HYDROBROMIDE
     Indication: PRODUCT USED FOR UNKNOWN INDICATION
     Dosage: UNK
     Route: 065
  3. DIOVAN [Suspect]
     Active Substance: VALSARTAN
     Indication: HYPERTENSION
     Dosage: UNK
     Route: 065
  4. DESALEX [Concomitant]
     Active Substance: DESLORATADINE
     Indication: DYSPNOEA
     Route: 065
  5. APRESOLIN [Suspect]
     Active Substance: HYDRALAZINE HYDROCHLORIDE
     Indication: AGITATION
     Dosage: UNK
     Route: 065
  6. DESALEX [Concomitant]
     Active Substance: DESLORATADINE
     Indication: INSOMNIA
  7. DIOVAN [Suspect]
     Active Substance: VALSARTAN
     Indication: SLEEP APNOEA SYNDROME
     Dosage: UNK
     Route: 065
     Dates: start: 2004
  8. AVAMYS [Concomitant]
     Active Substance: FLUTICASONE FUROATE
     Indication: INSOMNIA
     Dosage: UNK UNK, QD
     Route: 065
  9. XIGDUO XR [Concomitant]
     Active Substance: DAPAGLIFLOZIN PROPANEDIOL\METFORMIN HYDROCHLORIDE
     Indication: PRODUCT USED FOR UNKNOWN INDICATION
     Dosage: UNK
     Route: 065
  10. TORSILAX [Concomitant]
     Active Substance: ACETAMINOPHEN\CAFFEINE\CARISOPRODOL\DICLOFENAC
     Indication: ANTIINFLAMMATORY THERAPY
     Dosage: UNK
     Route: 065
  11. FORASEQ [Suspect]
     Active Substance: BUDESONIDE\FORMOTEROL FUMARATE
     Indication: PRODUCT USED FOR UNKNOWN INDICATION
     Dosage: UNK UNK, BID
     Route: 065
     Dates: start: 2006
  12. VIMOVO [Concomitant]
     Active Substance: ESOMEPRAZOLE MAGNESIUM\NAPROXEN
     Indication: PRODUCT USED FOR UNKNOWN INDICATION
     Dosage: UNK
     Route: 065

REACTIONS (14)
  - Pneumonia [Unknown]
  - Product use in unapproved indication [Unknown]
  - Sciatic nerve injury [Not Recovered/Not Resolved]
  - Blood pressure increased [Unknown]
  - Emphysema [Unknown]
  - Dyspnoea [Unknown]
  - Nasopharyngitis [Unknown]
  - Feeling abnormal [Unknown]
  - Agitation [Unknown]
  - Rhinitis [Unknown]
  - Drug dependence [Unknown]
  - Pain [Not Recovered/Not Resolved]
  - Drug ineffective [Unknown]
  - Packaging design issue [Unknown]

NARRATIVE: CASE EVENT DATE: 2006
